FAERS Safety Report 19730113 (Version 1)
Quarter: 2021Q3

REPORT INFORMATION
  Report Type: Spontaneous
  Country: US (occurrence: US)
  Receive Date: 20210820
  Receipt Date: 20210820
  Transmission Date: 20211014
  Serious: Yes (Other)
  Sender: FDA-Public Use
  Company Number: US-ALLERGAN-2128709US

PATIENT
  Sex: Female
  Weight: 68.93 kg

DRUGS (1)
  1. LATISSE [Suspect]
     Active Substance: BIMATOPROST
     Indication: GROWTH OF EYELASHES
     Dosage: APPLIES EVERYDAY TO EACH EYELID
     Route: 061

REACTIONS (5)
  - Arthritis [Recovered/Resolved]
  - Inappropriate schedule of product administration [Unknown]
  - Chondropathy [Recovered/Resolved]
  - Eyelash changes [Not Recovered/Not Resolved]
  - Therapeutic product effect decreased [Unknown]
